FAERS Safety Report 5205509-9 (Version None)
Quarter: 2006Q4

REPORT INFORMATION
  Report Type: 
  Country: None (occurrence: None)
  Receive Date: 20061027
  Receipt Date: 20051024
  Transmission Date: 20070319
  Serious: Yes (Other)
  Sender: FDA-Public Use
  Company Number: HQWYE261926OCT05

PATIENT
  Age: 40 Year
  Sex: Female

DRUGS (1)
  1. PREMARIN [Suspect]
     Indication: HYSTERECTOMY
     Dosage: 1 TABLET 1X PER 1 DAY, ORAL
     Route: 048
     Dates: start: 19960101, end: 19960101

REACTIONS (3)
  - INFLUENZA LIKE ILLNESS [None]
  - MUSCLE SPASMS [None]
  - NAUSEA [None]
